FAERS Safety Report 7756532-1 (Version None)
Quarter: 2011Q3

REPORT INFORMATION
  Report Type: 
  Country: None (occurrence: None)
  Receive Date: 20110916
  Receipt Date: 20110913
  Transmission Date: 20111222
  Serious: Yes (Other)
  Sender: FDA-Public Use
  Company Number: CHPA2011BR07833

PATIENT
  Age: 39 Year
  Sex: Female

DRUGS (1)
  1. NUPERCAINAL [Suspect]
     Indication: ANAL FISSURE
     Dosage: UNK, TID
     Route: 061
     Dates: start: 19960101

REACTIONS (5)
  - HAEMORRHOIDS [None]
  - SURGERY [None]
  - BREAST CANCER [None]
  - MASS EXCISION [None]
  - DISEASE RECURRENCE [None]
